FAERS Safety Report 17913156 (Version 4)
Quarter: 2020Q3

REPORT INFORMATION
  Report Type: Spontaneous
  Country: JP (occurrence: JP)
  Receive Date: 20200618
  Receipt Date: 20200806
  Transmission Date: 20201103
  Serious: Yes (Other)
  Sender: FDA-Public Use
  Company Number: PHJP2019JP010841

PATIENT
  Age: 51 Year
  Sex: Female

DRUGS (6)
  1. RULID [Concomitant]
     Active Substance: ROXITHROMYCIN
     Indication: PRODUCT USED FOR UNKNOWN INDICATION
     Dosage: 150 MG, BID
     Route: 048
     Dates: start: 20191227, end: 20200220
  2. MIYA?BM [Concomitant]
     Active Substance: CLOSTRIDIUM BUTYRICUM SPORES STRAIN M-55
     Indication: PRODUCT USED FOR UNKNOWN INDICATION
     Dosage: 1 DF, BID
     Route: 048
     Dates: start: 20191227, end: 20200220
  3. MIYA?BM [Concomitant]
     Active Substance: CLOSTRIDIUM BUTYRICUM SPORES STRAIN M-55
     Dosage: 1 DF, QD
     Route: 048
     Dates: start: 20200221, end: 20200319
  4. TAFINLAR [Suspect]
     Active Substance: DABRAFENIB MESYLATE
     Indication: MALIGNANT MELANOMA
     Dosage: 150 MG, BID
     Route: 048
     Dates: start: 20190111
  5. MEKINIST [Suspect]
     Active Substance: TRAMETINIB DIMETHYL SULFOXIDE
     Indication: MALIGNANT MELANOMA
     Dosage: 2 MG, QD
     Route: 048
     Dates: start: 20190111
  6. RULID [Concomitant]
     Active Substance: ROXITHROMYCIN
     Dosage: 150 MG, QD
     Route: 048
     Dates: start: 20200221, end: 20200319

REACTIONS (9)
  - Abdominal discomfort [Unknown]
  - Pyrexia [Unknown]
  - Constipation [Unknown]
  - Nodular rash [Unknown]
  - Headache [Unknown]
  - Panniculitis [Recovered/Resolved]
  - Erythema [Unknown]
  - Arthralgia [Unknown]
  - Pruritus [Unknown]

NARRATIVE: CASE EVENT DATE: 20190118
